FAERS Safety Report 7309972-9 (Version None)
Quarter: 2011Q1

REPORT INFORMATION
  Report Type: 
  Country: None (occurrence: None)
  Receive Date: 20110224
  Receipt Date: 20110210
  Transmission Date: 20110831
  Serious: Yes (Hospitalization)
  Sender: FDA-Public Use
  Company Number: JP-RANBAXY-2011RR-41798

PATIENT
  Age: 37 Year
  Sex: Male

DRUGS (2)
  1. CARBAMAZEPINE [Suspect]
     Indication: DEPRESSION
  2. PARACETAMOL [Suspect]
     Indication: OROPHARYNGEAL PAIN

REACTIONS (1)
  - TOXIC EPIDERMAL NECROLYSIS [None]
